FAERS Safety Report 7536285-2 (Version None)
Quarter: 2011Q2

REPORT INFORMATION
  Report Type: 
  Country: None (occurrence: None)
  Receive Date: 20110602
  Receipt Date: 20110525
  Transmission Date: 20111010
  Serious: Yes (Hospitalization)
  Sender: FDA-Public Use
  Company Number: LEO-2011-00464

PATIENT
  Age: 82 Year
  Sex: Female

DRUGS (1)
  1. INNOHEP [Suspect]
     Indication: ATRIAL FIBRILLATION
     Dosage: (1 IN 1 D), SUBCUTANEOUS
     Route: 058
     Dates: start: 20110401

REACTIONS (2)
  - INJECTION SITE PRURITUS [None]
  - INJECTION SITE ERYTHEMA [None]
